FAERS Safety Report 6140106-2 (Version None)
Quarter: 2009Q2

REPORT INFORMATION
  Report Type: 
  Country: None (occurrence: None)
  Receive Date: 20090401
  Receipt Date: 20090225
  Transmission Date: 20091009
  Serious: Yes (Disabling)
  Sender: FDA-Public Use
  Company Number: IE-PFIZER INC-2009157067

PATIENT

DRUGS (6)
  1. LYRICA [Suspect]
     Indication: ANXIETY
     Dosage: 50 MG, 2X/DAY
     Route: 048
     Dates: start: 20070601
  2. CITALOPRAM [Concomitant]
     Indication: DEPRESSION
     Dosage: 10 MG, 1X/DAY
     Route: 048
     Dates: start: 20060401
  3. CITALOPRAM [Concomitant]
     Indication: ANXIETY
  4. RABEPRAZOLE [Concomitant]
     Indication: PEPTIC ULCER
     Dosage: 20 MG, 1X/DAY
     Route: 048
     Dates: start: 20071101
  5. FRUSEMIDE [Concomitant]
     Indication: FLUID RETENTION
     Dosage: 20 MG, 1X/DAY
     Route: 048
     Dates: start: 20081101
  6. ZOPICLONE [Concomitant]
     Indication: INSOMNIA
     Dosage: 3.75 MG, 1X/DAY
     Route: 048
     Dates: start: 20060201

REACTIONS (1)
  - BRUXISM [None]
